FAERS Safety Report 23994175 (Version 1)
Quarter: 2024Q2

REPORT INFORMATION
  Report Type: Spontaneous
  Country: US (occurrence: US)
  Receive Date: 20240620
  Receipt Date: 20240620
  Transmission Date: 20240716
  Serious: Yes (Hospitalization)
  Sender: FDA-Public Use
  Company Number: US-BRISTOL-MYERS SQUIBB COMPANY-2024-098055

PATIENT
  Age: 84 Year
  Sex: Male
  Weight: 116.57 kg

DRUGS (1)
  1. REVLIMID [Suspect]
     Active Substance: LENALIDOMIDE
     Indication: Plasma cell myeloma
     Dosage: DAILY FOR 2 WEEKS THEN 1 WEEK OFF
     Route: 048

REACTIONS (3)
  - Pain [Unknown]
  - Off label use [Unknown]
  - Malaise [Unknown]
